FAERS Safety Report 5569510-8 (Version None)
Quarter: 2007Q4

REPORT INFORMATION
  Report Type: 
  Country: None (occurrence: None)
  Receive Date: 20071220
  Receipt Date: 20071212
  Transmission Date: 20080405
  Serious: Yes (Other)
  Sender: FDA-Public Use
  Company Number: PHEH2007US15374

PATIENT
  Age: 35 Year
  Sex: Female

DRUGS (4)
  1. CLOZAPINE [Suspect]
     Indication: SCHIZOPHRENIA
     Dosage: 200 MG, QD
  2. CLOZAPINE [Suspect]
     Dosage: 300 MG, UNK
  3. CLOZAPINE [Suspect]
     Dates: start: 19990101
  4. CLOZAPINE [Suspect]
     Dosage: 400 MG, QD

REACTIONS (3)
  - HIRSUTISM [None]
  - PSYCHOTIC DISORDER [None]
  - RESTLESSNESS [None]
